FAERS Safety Report 7444769-0 (Version None)
Quarter: 2011Q2

REPORT INFORMATION
  Report Type: 
  Country: None (occurrence: None)
  Receive Date: 20110420
  Receipt Date: 20110411
  Transmission Date: 20111010
  Serious: Yes (Death)
  Sender: FDA-Public Use
  Company Number: KV200900321

PATIENT
  Age: 39 Year
  Sex: Male
  Weight: 85.7 kg

DRUGS (5)
  1. MORPHINE SULFATE [Suspect]
     Indication: PHANTOM PAIN
     Dosage: 30 MG, BID, ORAL
     Route: 048
     Dates: start: 20081007
  2. MARIJUANA (CANNABIS SATIVA) [Concomitant]
  3. CHLORDIAZEPOXIDE [Concomitant]
  4. LIBRIUM /00011501/ (CHLORDIZEPOXIDE) [Concomitant]
  5. OXAZEPAM [Concomitant]

REACTIONS (3)
  - TOXICITY TO VARIOUS AGENTS [None]
  - UNRESPONSIVE TO STIMULI [None]
  - ACCIDENTAL OVERDOSE [None]
